FAERS Safety Report 4477125-8 (Version None)
Quarter: 2004Q4

REPORT INFORMATION
  Report Type: 
  Country: None (occurrence: None)
  Receive Date: 20041018
  Receipt Date: 20041011
  Transmission Date: 20050328
  Serious: Yes (Death, Hospitalization)
  Sender: FDA-Public Use
  Company Number: PHBS2004DE13654

PATIENT
  Age: 26 Year
  Sex: Female
  Weight: 149 kg

DRUGS (1)
  1. DICLOFENAC [Suspect]
     Indication: ARTHRALGIA
     Route: 030

REACTIONS (12)
  - BETA HAEMOLYTIC STREPTOCOCCAL INFECTION [None]
  - HAEMODIALYSIS [None]
  - HEPATIC FAILURE [None]
  - INJECTION SITE ABSCESS [None]
  - INJECTION SITE CELLULITIS [None]
  - MULTI-ORGAN FAILURE [None]
  - PNEUMONIA [None]
  - POST PROCEDURAL COMPLICATION [None]
  - PYREXIA [None]
  - RENAL FAILURE [None]
  - SEPSIS [None]
  - VAGINITIS [None]
